FAERS Safety Report 8544911-4 (Version None)
Quarter: 2012Q3

REPORT INFORMATION
  Report Type: 
  Country: None (occurrence: None)
  Receive Date: 20120727
  Receipt Date: 20120718
  Transmission Date: 20120928
  Serious: Yes (Hospitalization)
  Sender: FDA-Public Use
  Company Number: ES-FOUGERA-2012FO001259

PATIENT
  Age: 81 Year
  Sex: Male
  Weight: 79.83 kg

DRUGS (6)
  1. CODEINE PHOSPHATE [Concomitant]
     Indication: PRODUCT USED FOR UNKNOWN INDICATION
  2. DICLOFENAC SODIUM [Suspect]
     Indication: PAIN
  3. FINASTERIDE [Concomitant]
     Indication: PRODUCT USED FOR UNKNOWN INDICATION
  4. ACETAMINOPHEN [Concomitant]
     Indication: PRODUCT USED FOR UNKNOWN INDICATION
  5. ASPIRIN [Concomitant]
     Indication: PRODUCT USED FOR UNKNOWN INDICATION
  6. ATENOLOL [Suspect]
     Indication: HYPERTENSION

REACTIONS (3)
  - BRADYCARDIA [None]
  - RENAL FAILURE ACUTE [None]
  - OFF LABEL USE [None]
